FAERS Safety Report 6215029-0 (Version None)
Quarter: 2009Q2

REPORT INFORMATION
  Report Type: 
  Country: None (occurrence: None)
  Receive Date: 20090604
  Receipt Date: 20090123
  Transmission Date: 20091009
  Serious: Yes (Hospitalization, Other)
  Sender: FDA-Public Use
  Company Number: US-ASTRAZENECA-2008UW24106

PATIENT
  Age: 75 Year
  Sex: Female
  Weight: 85.7 kg

DRUGS (7)
  1. PRILOSEC [Suspect]
     Indication: HELICOBACTER INFECTION
     Route: 054
     Dates: start: 19980101
  2. BIAXIN [Suspect]
     Indication: HELICOBACTER INFECTION
  3. NSAID MEDICATION [Suspect]
     Indication: HELICOBACTER INFECTION
  4. TOPROL-XL [Concomitant]
     Route: 048
  5. TOPROL-XL [Concomitant]
     Dosage: 200-300 MG/DAY PRIOR TO THE PACEMAKER
     Route: 048
  6. COUMADIN [Concomitant]
  7. XANAX [Concomitant]

REACTIONS (1)
  - ANAPHYLACTIC REACTION [None]
